FAERS Safety Report 21346131 (Version 4)
Quarter: 2024Q4

REPORT INFORMATION
  Report Type: Spontaneous
  Country: DE (occurrence: DE)
  Receive Date: 20220917
  Receipt Date: 20241126
  Transmission Date: 20250114
  Serious: Yes (Hospitalization, Other)
  Sender: AUROBINDO
  Company Number: DE-ROCHE-2249599

PATIENT
  Age: 22 Year
  Sex: Female

DRUGS (9)
  1. OLANZAPINE [Suspect]
     Active Substance: OLANZAPINE
     Indication: Product used for unknown indication
     Dosage: 1.25 MILLIGRAM, ONCE A DAY (0-0-1)
     Route: 065
  2. OLANZAPINE [Suspect]
     Active Substance: OLANZAPINE
     Dosage: 15 MILLIGRAM, TWO TIMES A DAY (5-0-10)
     Route: 065
  3. OCREVUS [Suspect]
     Active Substance: OCRELIZUMAB
     Indication: Relapsing-remitting multiple sclerosis
     Dosage: 600 MILLIGRAM, 183 DAY
     Route: 042
  4. OCREVUS [Suspect]
     Active Substance: OCRELIZUMAB
     Dosage: 300 MILLIGRAM
     Route: 042
     Dates: start: 20190116
  5. OCREVUS [Suspect]
     Active Substance: OCRELIZUMAB
     Dosage: 600 MILLIGRAM
     Route: 042
     Dates: start: 20190724
  6. OCREVUS [Suspect]
     Active Substance: OCRELIZUMAB
     Dosage: 600 MILLIGRAM
     Route: 042
     Dates: start: 20200129
  7. OCREVUS [Suspect]
     Active Substance: OCRELIZUMAB
     Dosage: 600 MILLIGRAM
     Route: 042
     Dates: start: 20200806
  8. OCREVUS [Suspect]
     Active Substance: OCRELIZUMAB
     Dosage: 600 MILLIGRAM
     Route: 042
     Dates: start: 20210204
  9. CHOLECALCIFEROL [Concomitant]
     Active Substance: CHOLECALCIFEROL
     Indication: Product used for unknown indication
     Dosage: 20000 INTERNATIONAL UNIT
     Route: 065

REACTIONS (13)
  - Schizophrenia [Recovered/Resolved]
  - Ophthalmic herpes zoster [Recovered/Resolved]
  - Encephalitis [Recovered/Resolved]
  - Depressed mood [Not Recovered/Not Resolved]
  - Visual impairment [Not Recovered/Not Resolved]
  - Fatigue [Recovered/Resolved]
  - Nasopharyngitis [Recovered/Resolved]
  - Headache [Recovered/Resolved]
  - Depression [Recovered/Resolved]
  - Performance status decreased [Recovering/Resolving]
  - Oropharyngeal pain [Recovered/Resolved]
  - Pyrexia [Recovered/Resolved]
  - Throat clearing [Recovered/Resolved]

NARRATIVE: CASE EVENT DATE: 20190116
